FAERS Safety Report 14137040 (Version 2)
Quarter: 2017Q4

REPORT INFORMATION
  Report Type: Spontaneous
  Country: PT (occurrence: PT)
  Receive Date: 20171027
  Receipt Date: 20171120
  Transmission Date: 20180321
  Serious: Yes (Life-Threatening, Hospitalization, Other)
  Sender: FDA-Public Use
  Company Number: PT-VISTAPHARM, INC.-VER201710-000932

PATIENT
  Age: 3 Year
  Sex: Male

DRUGS (1)
  1. METHADONE [Suspect]
     Active Substance: METHADONE HYDROCHLORIDE
     Indication: PRODUCT USED FOR UNKNOWN INDICATION

REACTIONS (5)
  - Toxicity to various agents [Unknown]
  - Coma [Recovered/Resolved]
  - Toxic encephalopathy [Recovered/Resolved]
  - Hydrocephalus [Recovered/Resolved]
  - Accidental exposure to product by child [Unknown]
